FAERS Safety Report 7460774-2 (Version None)
Quarter: 2011Q2

REPORT INFORMATION
  Report Type: 
  Country: None (occurrence: None)
  Receive Date: 20110505
  Receipt Date: 20110428
  Transmission Date: 20111010
  Serious: Yes (Death, Other)
  Sender: FDA-Public Use
  Company Number: PHFR2011IE01111

PATIENT
  Sex: Female

DRUGS (2)
  1. CLOZARIL [Suspect]
     Indication: SCHIZOPHRENIA
     Dosage: 450 MG, DAILY
     Route: 048
     Dates: start: 20010423
  2. GLUCOPHAGE [Concomitant]
     Indication: TYPE 2 DIABETES MELLITUS
     Dates: start: 20000608

REACTIONS (6)
  - PULSE ABSENT [None]
  - CORONARY ARTERY DISEASE [None]
  - LOSS OF CONSCIOUSNESS [None]
  - DIABETIC COMPLICATION [None]
  - CHEST PAIN [None]
  - MYOCARDIAL INFARCTION [None]
